FAERS Safety Report 8585700 (Version 2)
Quarter: 2012Q4

REPORT INFORMATION
  Report Type: 
  Country: SE (occurrence: SE)
  Receive Date: 20120530
  Receipt Date: 20121121
  Transmission Date: 20130627
  Serious: Yes (Other)
  Sender: FDA-Public Use
  Company Number: SE-ELI_LILLY_AND_COMPANY-SE201205007006

PATIENT
  Age: 39 Year
  Sex: Female
  Weight: 60 kg

DRUGS (4)
  1. ZYPADHERA [Suspect]
     Indication: SCHIZOPHRENIA
     Dosage: 300 mg, every 3 weeks
     Route: 030
     Dates: start: 20100804
  2. ANTABUS [Concomitant]
     Indication: ALCOHOL ABUSE
     Dosage: 400mg, Mon
  3. NALTREXONE [Concomitant]
     Dosage: 50mg, Unk
  4. SERTRALINE [Concomitant]
     Dosage: 50mg, UNK

REACTIONS (5)
  - Confusional state [Recovered/Resolved]
  - Amnesia [Unknown]
  - Fatigue [Recovered/Resolved]
  - Agitation [Recovered/Resolved]
  - Hallucination [Recovered/Resolved]
